FAERS Safety Report 19589312 (Version 1)
Quarter: 2021Q3

REPORT INFORMATION
  Report Type: Spontaneous
  Country: None (occurrence: US)
  Receive Date: 20210721
  Receipt Date: 20210721
  Transmission Date: 20211014
  Serious: Yes (Other)
  Sender: FDA-Public Use
  Company Number: US-CHEPLA-2021000527

PATIENT
  Age: 38 Year
  Sex: Female

DRUGS (2)
  1. GANCICLOVIR. [Suspect]
     Active Substance: GANCICLOVIR
     Indication: HERPES SIMPLEX
     Dosage: UNK (3 TO THE RIGHT EYE)
  2. FOSCARNET [Suspect]
     Active Substance: FOSCARNET
     Indication: HERPES SIMPLEX
     Dosage: UNK (7 TO RIGHT EYE)

REACTIONS (4)
  - Rhegmatogenous retinal detachment [Unknown]
  - Tractional retinal detachment [Unknown]
  - Product use issue [Unknown]
  - Product use in unapproved indication [Unknown]
